FAERS Safety Report 5962562-2 (Version None)
Quarter: 2008Q4

REPORT INFORMATION
  Report Type: 
  Country: None (occurrence: None)
  Receive Date: 20081121
  Receipt Date: 20081111
  Transmission Date: 20090506
  Serious: Yes (Other)
  Sender: FDA-Public Use
  Company Number: US-PFIZER INC-2008095680

PATIENT
  Sex: Female
  Weight: 77.1 kg

DRUGS (8)
  1. LYRICA [Suspect]
     Indication: FIBROMYALGIA
     Route: 048
     Dates: start: 20081109, end: 20081110
  2. FUROSEMIDE [Concomitant]
  3. NEXIUM [Concomitant]
  4. LOPRESSOR [Concomitant]
  5. METOPROLOL [Concomitant]
  6. MAVIK [Concomitant]
  7. CALCIUM [Concomitant]
  8. ALL OTHER THERAPEUTIC PRODUCTS [Concomitant]

REACTIONS (5)
  - BLOOD PRESSURE INCREASED [None]
  - DYSKINESIA [None]
  - HOT FLUSH [None]
  - INSOMNIA [None]
  - PALPITATIONS [None]
